FAERS Safety Report 18685121 (Version 1)
Quarter: 2020Q4

REPORT INFORMATION
  Report Type: Spontaneous
  Country: NP (occurrence: NP)
  Receive Date: 20201230
  Receipt Date: 20201230
  Transmission Date: 20210114
  Serious: Yes (Hospitalization, Other)
  Sender: FDA-Public Use
  Company Number: NP-SLATE RUN PHARMACEUTICALS-20NP000360

PATIENT

DRUGS (1)
  1. AZITHROMYCIN USP [Suspect]
     Active Substance: AZITHROMYCIN
     Indication: ACNE
     Dosage: UNK, QD
     Route: 065

REACTIONS (7)
  - Acute generalised exanthematous pustulosis [Recovering/Resolving]
  - Off label use [Unknown]
  - Lactic acidosis [Recovered/Resolved]
  - Delirium [Recovered/Resolved]
  - Hyponatraemia [Recovered/Resolved]
  - Aspartate aminotransferase increased [Recovered/Resolved]
  - Alanine aminotransferase increased [Recovering/Resolving]
